FAERS Safety Report 8859475 (Version 2)
Quarter: 2012Q4

REPORT INFORMATION
  Report Type: Spontaneous
  Country: US (occurrence: None)
  Receive Date: 20121023
  Receipt Date: 20121120
  Transmission Date: 20130627
  Serious: Yes (Death, Hospitalization)
  Sender: FDA-Public Use
  Company Number: AUR-APL-2012-04482

PATIENT
  Age: 57 Year
  Sex: Female

DRUGS (10)
  1. METFORMIN [Suspect]
     Indication: DRUG USE FOR UNKNOWN INDICATION
     Route: 048
  2. MIRTAZAPINE (MIRTAZAPINE) [Concomitant]
  3. ATORVASTATIN (ATORVASTATIN) [Concomitant]
  4. GLIPIZIDE (GLIPIZIDE) [Concomitant]
  5. PIOGLITAZONE/GLIMEPRIDINE (GLIMEPIRIDE AND PIOGLITAZONE) [Concomitant]
  6. TRAZODONE (TRAZODONE) [Concomitant]
  7. LOSARTAN (LOSARTAN) [Concomitant]
  8. CLONAZEPAM (CLONAZEPAM) (CLONAZEPAM) [Concomitant]
  9. UBIDECARENONE (UBIDECARENONE) [Concomitant]
  10. ASPIRIN (ACETYLSALICYLIC ACID) [Concomitant]

REACTIONS (16)
  - Vomiting [None]
  - Diarrhoea [None]
  - Stomatitis [None]
  - Heart rate increased [None]
  - Hypotension [None]
  - Depressed level of consciousness [None]
  - Completed suicide [None]
  - Toxicity to various agents [None]
  - Intentional drug misuse [None]
  - Blood sodium decreased [None]
  - Blood potassium increased [None]
  - Blood glucose increased [None]
  - Carbon dioxide decreased [None]
  - Haemodialysis [None]
  - Gastric mucosa erythema [None]
  - Poisoning deliberate [None]
